FAERS Safety Report 4479476-X (Version None)
Quarter: 2004Q4

REPORT INFORMATION
  Report Type: 
  Country: None (occurrence: None)
  Receive Date: 20041020
  Receipt Date: 20041011
  Transmission Date: 20050328
  Serious: Yes (Other)
  Sender: FDA-Public Use
  Company Number: PHNU2004DE03481

PATIENT
  Sex: Male

DRUGS (4)
  1. TEGRETOL [Suspect]
     Indication: POST-TRAUMATIC EPILEPSY
     Dosage: 200 MG, BID
     Route: 065
     Dates: start: 19760101
  2. ATACAND [Suspect]
     Dates: start: 20030101
  3. HYDROCHLOROTHIAZIDE [Suspect]
     Dosage: 5 MG/DAY
     Dates: start: 20030101
  4. MYLEPSIN [Concomitant]
     Dates: start: 20030101

REACTIONS (4)
  - EMPHYSEMA [None]
  - HYPONATRAEMIA [None]
  - NIGHTMARE [None]
  - STRESS SYMPTOMS [None]
